FAERS Safety Report 4264408-X (Version None)
Quarter: 2004Q1

REPORT INFORMATION
  Report Type: 
  Country: None (occurrence: None)
  Receive Date: 20040102
  Receipt Date: 20031222
  Transmission Date: 20041129
  Serious: Yes (Hospitalization, Disabling, Other)
  Sender: FDA-Public Use
  Company Number: EM2003-0412

PATIENT
  Age: 62 Year
  Sex: Male

DRUGS (5)
  1. PROLEUKIN [Suspect]
     Indication: RENAL CELL CARCINOMA STAGE UNSPECIFIED
     Dosage: 18 MIU, SUBCUTANEOUS
     Route: 058
     Dates: end: 20021218
  2. ROFERON-A [Suspect]
     Indication: RENAL CELL CARCINOMA STAGE UNSPECIFIED
     Dosage: 9 MIU,
     Dates: end: 20021218
  3. ACETAMINOPHEN [Concomitant]
  4. NOVALGIN (METAMIZOLE SODIUM) [Concomitant]
  5. METOCLOPRAMIDE HYDROCHLORIDE [Concomitant]

REACTIONS (5)
  - ASTHENIA [None]
  - BALANCE DISORDER [None]
  - DEHYDRATION [None]
  - ELECTROLYTE IMBALANCE [None]
  - SPEECH DISORDER [None]
